FAERS Safety Report 7020134-5 (Version None)
Quarter: 2010Q3

REPORT INFORMATION
  Report Type: 
  Country: None (occurrence: None)
  Receive Date: 20100929
  Receipt Date: 20100920
  Transmission Date: 20110219
  Serious: Yes (Other)
  Sender: FDA-Public Use
  Company Number: US-ELI_LILLY_AND_COMPANY-US201009006278

PATIENT
  Sex: Male

DRUGS (2)
  1. EFFIENT [Suspect]
     Dosage: 60 MG, OTHER (LOADING DOSE)
     Dates: start: 20100901, end: 20100920
  2. EFFIENT [Suspect]
     Dosage: 10 MG, UNKNOWN

REACTIONS (1)
  - THROMBOSIS IN DEVICE [None]
